FAERS Safety Report 6882590-2 (Version None)
Quarter: 2010Q3

REPORT INFORMATION
  Report Type: 
  Country: None (occurrence: None)
  Receive Date: 20100729
  Receipt Date: 20100413
  Transmission Date: 20110219
  Serious: No
  Sender: FDA-Public Use
  Company Number: US-MYLANLABS-2010S1006460

PATIENT
  Age: 50 Year
  Sex: Male

DRUGS (3)
  1. POLYETHYLENE GLYCOL 3350 POWDER FOR SOLUTION [Suspect]
     Indication: CONSTIPATION
     Route: 048
     Dates: start: 20100409
  2. DOC-Q-LACE [Suspect]
     Indication: CONSTIPATION
     Route: 048
     Dates: start: 20100409
  3. DULCOLAX [Suspect]
     Indication: CONSTIPATION
     Route: 048
     Dates: start: 20100406, end: 20100408

REACTIONS (2)
  - CONSTIPATION [None]
  - DRUG INEFFECTIVE [None]
